FAERS Safety Report 8547822-3 (Version None)
Quarter: 2012Q3

REPORT INFORMATION
  Report Type: 
  Country: None (occurrence: None)
  Receive Date: 20120727
  Receipt Date: 20120305
  Transmission Date: 20120928
  Serious: Yes (Other)
  Sender: FDA-Public Use
  Company Number: US-ASTRAZENECA-2012SE11516

PATIENT
  Sex: Female
  Weight: 81.6 kg

DRUGS (7)
  1. SEROQUEL XR [Suspect]
     Route: 048
     Dates: end: 20110101
  2. SEROQUEL XR [Suspect]
     Route: 048
  3. TOPAMAX [Concomitant]
     Indication: OSTEOPENIA
  4. SEROQUEL XR [Suspect]
     Indication: BIPOLAR DISORDER
     Route: 048
  5. SEROQUEL XR [Suspect]
     Route: 048
     Dates: end: 20110101
  6. SEROQUEL XR [Suspect]
     Indication: SCHIZOPHRENIA
     Route: 048
  7. SEROQUEL XR [Suspect]
     Route: 048

REACTIONS (5)
  - TARDIVE DYSKINESIA [None]
  - CONVULSION [None]
  - WEIGHT INCREASED [None]
  - MEMORY IMPAIRMENT [None]
  - TONGUE BLISTERING [None]
